FAERS Safety Report 16809293 (Version 1)
Quarter: 2019Q3

REPORT INFORMATION
  Report Type: Spontaneous
  Country: US (occurrence: US)
  Receive Date: 20190916
  Receipt Date: 20190916
  Transmission Date: 20191005
  Serious: No
  Sender: FDA-Public Use
  Company Number: US-HTU-2019US019176

PATIENT
  Sex: Male

DRUGS (9)
  1. TARGRETIN [Concomitant]
     Active Substance: BEXAROTENE
  2. ASPIRIN                            /00002701/ [Concomitant]
     Active Substance: ASPIRIN
  3. IRON [Concomitant]
     Active Substance: IRON
  4. VALCHLOR [Suspect]
     Active Substance: MECHLORETHAMINE
     Indication: CUTANEOUS T-CELL LYMPHOMA
     Dosage: UNK, UNKNOWN
     Route: 061
     Dates: start: 20140321
  5. NORVASC [Concomitant]
     Active Substance: AMLODIPINE BESYLATE
  6. SYNTHROID [Concomitant]
     Active Substance: LEVOTHYROXINE SODIUM
  7. FISH OIL [Concomitant]
     Active Substance: FISH OIL
  8. TRICOR                             /00090101/ [Concomitant]
     Active Substance: ADENOSINE
  9. LISINOPRIL. [Concomitant]
     Active Substance: LISINOPRIL

REACTIONS (3)
  - Skin erosion [Unknown]
  - Skin fissures [Unknown]
  - Rash erythematous [Unknown]
